FAERS Safety Report 7463857-6 (Version None)
Quarter: 2011Q2

REPORT INFORMATION
  Report Type: 
  Country: None (occurrence: None)
  Receive Date: 20110506
  Receipt Date: 20110503
  Transmission Date: 20111010
  Serious: Yes (Death)
  Sender: FDA-Public Use
  Company Number: US-AMGEN-USASP2011023111

PATIENT
  Age: 66 Year
  Sex: Female

DRUGS (8)
  1. NPLATE [Suspect]
     Indication: IDIOPATHIC THROMBOCYTOPENIC PURPURA
     Dates: start: 20100318, end: 20100625
  2. APREPITANT [Concomitant]
     Dosage: 125 MG, UNK
     Route: 048
  3. DECADRON [Concomitant]
     Dosage: 10 MG, UNK
     Route: 042
  4. NEULASTA [Concomitant]
     Dosage: 5 MG, UNK
     Route: 058
  5. GEMCITABINE [Concomitant]
     Dosage: 1400 MG, UNK
     Route: 042
  6. MANNITOL [Concomitant]
     Dosage: 25 G, UNK
     Route: 042
  7. CISPLATIN [Concomitant]
     Dosage: 30 MG, UNK
     Route: 042
  8. ALOXI [Concomitant]
     Dosage: 0.25 MG, UNK
     Route: 042

REACTIONS (1)
  - DEATH [None]
